FAERS Safety Report 21847012 (Version 1)
Quarter: 2023Q1

REPORT INFORMATION
  Report Type: Spontaneous
  Country: US (occurrence: None)
  Receive Date: 20230110
  Receipt Date: 20230110
  Transmission Date: 20230417
  Serious: Yes (Life-Threatening, Hospitalization)
  Sender: FDA-Public Use
  Company Number: None

PATIENT
  Age: 44 Year
  Sex: Female
  Weight: 128 kg

DRUGS (2)
  1. IODIXANOL [Suspect]
     Active Substance: IODIXANOL
     Indication: Nausea
     Dosage: 100 ML ONCE IV
     Route: 042
     Dates: start: 20211229, end: 20211229
  2. IODIXANOL [Suspect]
     Active Substance: IODIXANOL
     Indication: Vomiting

REACTIONS (11)
  - Contrast media reaction [None]
  - Dyspnoea [None]
  - Seizure [None]
  - Depressed level of consciousness [None]
  - Swelling face [None]
  - Lip swelling [None]
  - Swollen tongue [None]
  - Confusional state [None]
  - Dizziness [None]
  - Anaphylactic reaction [None]
  - Angioedema [None]

NARRATIVE: CASE EVENT DATE: 20211229
